FAERS Safety Report 11835206 (Version 1)
Quarter: 2015Q4

REPORT INFORMATION
  Report Type: Report from Study
  Country: US (occurrence: US)
  Receive Date: 20151215
  Receipt Date: 20151215
  Transmission Date: 20160305
  Serious: No
  Sender: FDA-Public Use
  Company Number: PHEH2015US001282

PATIENT
  Age: 59 Year
  Sex: Female
  Weight: 71.2 kg

DRUGS (1)
  1. GILENYA [Suspect]
     Active Substance: FINGOLIMOD HYDROCHLORIDE
     Indication: MULTIPLE SCLEROSIS
     Dosage: 0.5 MG, QD
     Route: 048
     Dates: start: 20141205

REACTIONS (12)
  - Fatigue [Unknown]
  - Weight increased [Unknown]
  - Stress [Unknown]
  - Feeling abnormal [Unknown]
  - Hypokinesia [Unknown]
  - Depression [Unknown]
  - Limb discomfort [Unknown]
  - Hypersomnia [Unknown]
  - Malaise [Unknown]
  - Cough [Not Recovered/Not Resolved]
  - Sinusitis [Not Recovered/Not Resolved]
  - Pyrexia [Not Recovered/Not Resolved]

NARRATIVE: CASE EVENT DATE: 201412
